FAERS Safety Report 7363107-5 (Version None)
Quarter: 2011Q1

REPORT INFORMATION
  Report Type: 
  Country: None (occurrence: None)
  Receive Date: 20110321
  Receipt Date: 20110308
  Transmission Date: 20110831
  Serious: Yes (Other)
  Sender: FDA-Public Use
  Company Number: CZ-AMGEN-CZESP2011014090

PATIENT
  Age: 58 Year
  Sex: Male

DRUGS (1)
  1. ENBREL [Suspect]
     Indication: RHEUMATOID ARTHRITIS
     Dosage: ALTOGETHER 8 INJECTIONS
     Dates: start: 20090301, end: 20090501

REACTIONS (4)
  - AXONAL NEUROPATHY [None]
  - DEMYELINATION [None]
  - NEUROPATHY PERIPHERAL [None]
  - DRUG INEFFECTIVE [None]
